FAERS Safety Report 14212040 (Version 1)
Quarter: 2017Q4

REPORT INFORMATION
  Report Type: Other
  Country: US (occurrence: US)
  Receive Date: 20171121
  Receipt Date: 20171121
  Transmission Date: 20180321
  Serious: No
  Sender: FDA-Public Use
  Company Number: US-LEADIANT BIOSCIENCES INC-2017STPI000006

PATIENT

DRUGS (12)
  1. CARNITOR [Concomitant]
     Active Substance: LEVOCARNITINE
  2. SIMVASTATIN. [Concomitant]
     Active Substance: SIMVASTATIN
  3. IRON [Concomitant]
     Active Substance: IRON
  4. MAGNESIUM [Concomitant]
     Active Substance: MAGNESIUM
  5. SODIUM PHOSPHATE [Concomitant]
     Active Substance: SODIUM PHOSPHATE
  6. ZOCOR [Concomitant]
     Active Substance: SIMVASTATIN
  7. KLOR-CON M20 [Concomitant]
     Active Substance: POTASSIUM CHLORIDE
  8. LEVOTHYROXIN [Concomitant]
     Active Substance: LEVOTHYROXINE
  9. UROCIT [Concomitant]
  10. CYSTARAN [Suspect]
     Active Substance: CYSTEAMINE HYDROCHLORIDE
     Indication: CYSTINOSIS
     Dosage: 1 GTT, IN EACH EYE Q, 4 TO 6 HOURS
     Route: 047
     Dates: start: 20140911
  11. LISINOPRIL. [Concomitant]
     Active Substance: LISINOPRIL
  12. SODIUM CHLORIDE. [Concomitant]
     Active Substance: SODIUM CHLORIDE

REACTIONS (1)
  - Eye irritation [None]
